FAERS Safety Report 8214690-9 (Version None)
Quarter: 2012Q1

REPORT INFORMATION
  Report Type: 
  Country: None (occurrence: None)
  Receive Date: 20120313
  Receipt Date: 20120302
  Transmission Date: 20120608
  Serious: Yes (Other)
  Sender: FDA-Public Use
  Company Number: 130772

PATIENT
  Sex: Female

DRUGS (1)
  1. ACETYLCYSTEINE [Suspect]
     Indication: TOXICITY TO VARIOUS AGENTS
     Dosage: IV
     Route: 042
     Dates: start: 20120301

REACTIONS (1)
  - INCORRECT ROUTE OF DRUG ADMINISTRATION [None]
